FAERS Safety Report 7281024-6 (Version None)
Quarter: 2011Q1

REPORT INFORMATION
  Report Type: 
  Country: None (occurrence: None)
  Receive Date: 20110203
  Receipt Date: 20110203
  Transmission Date: 20110831
  Serious: No
  Sender: FDA-Public Use
  Company Number: None

PATIENT
  Sex: Female
  Weight: 54.5 kg

DRUGS (3)
  1. ONCASPAR [Suspect]
     Dosage: 7830 MG
     Dates: start: 20101207
  2. METHOTREXATE [Suspect]
     Dosage: 1080 MG
     Dates: start: 20101230
  3. VINCRISTINE SULFATE [Suspect]
     Dosage: 10 MG
     Dates: start: 20110111

REACTIONS (2)
  - BLOOD COUNT ABNORMAL [None]
  - BLOOD GLUCOSE INCREASED [None]
